FAERS Safety Report 5214378-2 (Version None)
Quarter: 2007Q1

REPORT INFORMATION
  Report Type: 
  Country: None (occurrence: None)
  Receive Date: 20070122
  Receipt Date: 20070117
  Transmission Date: 20070707
  Serious: Yes (Death, Life-Threatening)
  Sender: FDA-Public Use
  Company Number: FR-GLAXOSMITHKLINE-B0454423A

PATIENT
  Age: 94 Year
  Sex: Male

DRUGS (16)
  1. AUGMENTIN '125' [Suspect]
     Indication: BRONCHOPNEUMOPATHY
     Dosage: 1G THREE TIMES PER DAY
     Route: 042
     Dates: start: 20061226, end: 20061230
  2. DAFALGAN [Suspect]
     Dosage: 1G THREE TIMES PER DAY
     Route: 048
     Dates: start: 20061223, end: 20061227
  3. BUSPAR [Suspect]
     Dosage: 5MG PER DAY
     Route: 048
     Dates: start: 20061225, end: 20061229
  4. ORGARAN [Suspect]
     Indication: PHLEBITIS
     Dosage: .6ML TWICE PER DAY
     Route: 058
     Dates: start: 20061227, end: 20061229
  5. SERESTA 10 MG [Suspect]
     Dosage: 10MG PER DAY
     Route: 048
     Dates: start: 20061223, end: 20061229
  6. CORDARONE [Suspect]
     Dosage: 200MG PER DAY
     Route: 048
     Dates: start: 20061223, end: 20061229
  7. KARDEGIC 160 [Concomitant]
     Dosage: 160MG IN THE MORNING
     Route: 065
  8. AMLOR [Concomitant]
     Dosage: 5MG TWICE PER DAY
     Route: 065
  9. SELOKEN [Concomitant]
     Dosage: 1UNIT TWICE PER DAY
     Route: 065
  10. OMEPRAZOLE [Concomitant]
     Dosage: 1UNIT AT NIGHT
     Route: 065
  11. CORDIPATCH [Concomitant]
     Dosage: 5MG PER DAY
     Route: 062
  12. LASIX [Concomitant]
     Route: 065
  13. DIFFU-K [Concomitant]
     Route: 065
  14. EQUANIL [Concomitant]
     Route: 065
  15. VOGALENE [Concomitant]
     Route: 065
  16. OXYGEN THERAPY [Concomitant]
     Indication: BRONCHOPNEUMOPATHY
     Dates: start: 20061226

REACTIONS (2)
  - DEATH [None]
  - THROMBOCYTOPENIA [None]
